FAERS Safety Report 7053736-0 (Version None)
Quarter: 2010Q4

REPORT INFORMATION
  Report Type: 
  Country: None (occurrence: None)
  Receive Date: 20101020
  Receipt Date: 20101012
  Transmission Date: 20110411
  Serious: Yes (Disabling, Other)
  Sender: FDA-Public Use
  Company Number: A0886143A

PATIENT
  Age: 57 Year
  Sex: Female

DRUGS (5)
  1. LAMICTAL [Suspect]
     Indication: BIPOLAR DISORDER
     Dosage: 150MG PER DAY
     Route: 048
     Dates: start: 20100803
  2. LAMOTRIGINE [Suspect]
     Indication: BIPOLAR DISORDER
     Route: 048
     Dates: start: 20100101
  3. SONATA [Concomitant]
  4. COZAAR [Concomitant]
     Dosage: 25MG UNKNOWN
  5. LIPITOR [Concomitant]
     Dosage: 40MG UNKNOWN

REACTIONS (3)
  - CONSTIPATION [None]
  - DRY SKIN [None]
  - SKIN WARM [None]
